FAERS Safety Report 9021903 (Version 1)
Quarter: 2013Q1

REPORT INFORMATION
  Report Type: Report from Study
  Country: CA (occurrence: CA)
  Receive Date: 20130118
  Receipt Date: 20130118
  Transmission Date: 20140127
  Serious: Yes (Other)
  Sender: FDA-Public Use
  Company Number: CA-JNJFOC-20130105935

PATIENT
  Age: 60 None
  Sex: Female
  Weight: 50 kg

DRUGS (2)
  1. REMICADE [Suspect]
     Indication: CROHN^S DISEASE
     Route: 042
     Dates: start: 201211
  2. REMICADE [Suspect]
     Indication: CROHN^S DISEASE
     Route: 042
     Dates: start: 20100622

REACTIONS (4)
  - Diarrhoea [Recovering/Resolving]
  - Body temperature increased [Not Recovered/Not Resolved]
  - Night sweats [Not Recovered/Not Resolved]
  - Arthritis [Not Recovered/Not Resolved]
